FAERS Safety Report 10059670 (Version 2)
Quarter: 2014Q2

REPORT INFORMATION
  Report Type: Report from Study
  Country: MX (occurrence: MX)
  Receive Date: 20140404
  Receipt Date: 20140521
  Transmission Date: 20141212
  Serious: Yes (Other)
  Sender: FDA-Public Use
  Company Number: PHHY2014MX040612

PATIENT
  Age: 8 Year
  Sex: Male

DRUGS (2)
  1. TRILEPTAL [Suspect]
     Indication: CYCLIC VOMITING SYNDROME
     Dosage: 1 DF (1 TABLET), DAILY
     Route: 048
     Dates: start: 2008, end: 201310
  2. TRILEPTAL [Suspect]
     Indication: OFF LABEL USE
     Dosage: 0.5 DF (HALF TABLET), DAILY
     Route: 048
     Dates: start: 201310

REACTIONS (1)
  - Attention deficit/hyperactivity disorder [Not Recovered/Not Resolved]
